FAERS Safety Report 8877127 (Version 1)
Quarter: 2012Q4

REPORT INFORMATION
  Report Type: 
  Country: US (occurrence: US)
  Receive Date: 20121029
  Receipt Date: 20121029
  Transmission Date: 20130627
  Serious: No
  Sender: FDA-Public Use
  Company Number: US-PFIZER INC-2012265859

PATIENT
  Age: 69 Year
  Sex: Male
  Weight: 81.63 kg

DRUGS (4)
  1. CAVERJECT [Suspect]
     Indication: ERECTILE DYSFUNCTION
     Dosage: 10 ug, as needed
     Dates: start: 200610
  2. CAVERJECT [Suspect]
     Dosage: 40 ug, as needed
  3. CAVERJECT [Suspect]
     Dosage: 80 ug, as needed
  4. LISINOPRIL [Concomitant]
     Indication: HYPERTENSION
     Dosage: 10 mg, daily

REACTIONS (2)
  - Drug ineffective [Unknown]
  - Incorrect dose administered [Unknown]
